FAERS Safety Report 8983638 (Version 1)
Quarter: 2012Q4

REPORT INFORMATION
  Report Type: 
  Country: US (occurrence: US)
  Receive Date: 20121224
  Receipt Date: 20121224
  Transmission Date: 20130627
  Serious: Yes (Other)
  Sender: FDA-Public Use
  Company Number: US-RANBAXY-2012US-63470

PATIENT
  Age: 68 Year
  Sex: Male
  Weight: 65.9 kg

DRUGS (1)
  1. ATORVASTATIN [Suspect]
     Indication: BLOOD CHOLESTEROL
     Dosage: 40 mg, qd
     Route: 048
     Dates: start: 20121122

REACTIONS (1)
  - Haematochezia [Recovered/Resolved]
